FAERS Safety Report 16362334 (Version 2)
Quarter: 2019Q4

REPORT INFORMATION
  Report Type: Spontaneous
  Country: US (occurrence: US)
  Receive Date: 20190528
  Receipt Date: 20191127
  Transmission Date: 20200122
  Serious: No
  Sender: FDA-Public Use
  Company Number: US-PFIZER INC-2019224424

PATIENT
  Age: 69 Year
  Sex: Male
  Weight: 99.79 kg

DRUGS (1)
  1. LYRICA [Suspect]
     Active Substance: PREGABALIN
     Indication: FIBROMYALGIA
     Dosage: 450 MG, DAILY

REACTIONS (6)
  - Off label use [Unknown]
  - Tinnitus [Recovered/Resolved]
  - Product use issue [Unknown]
  - Fatigue [Unknown]
  - Musculoskeletal pain [Unknown]
  - Dry mouth [Unknown]
